FAERS Safety Report 5249341-9 (Version None)
Quarter: 2007Q1

REPORT INFORMATION
  Report Type: 
  Country: None (occurrence: None)
  Receive Date: 20070223
  Receipt Date: 20070214
  Transmission Date: 20070707
  Serious: Yes (Disabling)
  Sender: FDA-Public Use
  Company Number: 152956ISR

PATIENT
  Age: 6 Year
  Sex: Male

DRUGS (4)
  1. CISPLATIN [Suspect]
     Indication: PRIMITIVE NEUROECTODERMAL TUMOUR
  2. ETOPOSIDE [Suspect]
     Indication: PRIMITIVE NEUROECTODERMAL TUMOUR
  3. CYCLOPHOSPHAMIDE [Suspect]
     Indication: PRIMITIVE NEUROECTODERMAL TUMOUR
  4. VINCRISTINE [Suspect]
     Indication: PRIMITIVE NEUROECTODERMAL TUMOUR
     Dosage: 1. 5 MG/M2

REACTIONS (4)
  - COLOUR BLINDNESS [None]
  - EYE PAIN [None]
  - OPTIC ATROPHY [None]
  - VISUAL ACUITY REDUCED [None]
